FAERS Safety Report 4916308-7 (Version None)
Quarter: 2006Q1

REPORT INFORMATION
  Report Type: 
  Country: None (occurrence: None)
  Receive Date: 20060217
  Receipt Date: 20060209
  Transmission Date: 20060701
  Serious: Yes (Hospitalization)
  Sender: FDA-Public Use
  Company Number: FR-MERCK-0602FRA00035

PATIENT
  Age: 93 Year
  Sex: Female
  Weight: 40 kg

DRUGS (11)
  1. NOROXIN [Suspect]
     Indication: URINARY TRACT INFECTION
     Route: 048
     Dates: start: 20060103, end: 20060111
  2. AMOXICILLIN [Suspect]
     Indication: GASTRIC ULCER HELICOBACTER
     Route: 048
     Dates: start: 20060112, end: 20060119
  3. CLARITHROMYCIN [Suspect]
     Indication: GASTRIC ULCER HELICOBACTER
     Route: 048
     Dates: start: 20060112, end: 20060119
  4. FUROSEMIDE [Concomitant]
     Indication: HYPERTENSION
     Route: 048
     Dates: end: 20060102
  5. LOSARTAN POTASSIUM [Concomitant]
     Indication: HYPERTENSION
     Route: 048
     Dates: end: 20060102
  6. OMEPRAZOLE [Concomitant]
     Indication: GASTRIC ULCER HAEMORRHAGE
     Route: 048
     Dates: start: 20060104
  7. ACETAMINOPHEN [Concomitant]
     Route: 048
  8. DIGOXIN [Concomitant]
     Route: 048
  9. TRAMADOL HYDROCHLORIDE [Concomitant]
     Route: 048
  10. DILTIAZEM HYDROCHLORIDE [Concomitant]
     Indication: HYPERTENSION
     Route: 048
     Dates: end: 20060102
  11. URAPIDIL [Concomitant]
     Indication: HYPERTENSION
     Route: 048
     Dates: end: 20060102

REACTIONS (2)
  - HYPOTENSION [None]
  - LEUKOCYTOCLASTIC VASCULITIS [None]
